FAERS Safety Report 7718263-3 (Version None)
Quarter: 2011Q3

REPORT INFORMATION
  Report Type: 
  Country: None (occurrence: None)
  Receive Date: 20110830
  Receipt Date: 20110824
  Transmission Date: 20111222
  Serious: Yes (Other)
  Sender: FDA-Public Use
  Company Number: AU-ROCHE-798406

PATIENT

DRUGS (4)
  1. HERCEPTIN [Suspect]
     Route: 065
  2. LAPATINIB [Concomitant]
  3. TAXANES [Concomitant]
  4. XELODA [Suspect]
     Route: 065

REACTIONS (1)
  - METASTASES TO NERVOUS SYSTEM [None]
